FAERS Safety Report 9723199 (Version 1)
Quarter: 2013Q4

REPORT INFORMATION
  Report Type: Spontaneous
  Country: US (occurrence: None)
  Receive Date: 20131127
  Receipt Date: 20131127
  Transmission Date: 20140711
  Serious: No
  Sender: FDA-Public Use
  Company Number: None

PATIENT
  Age: 81 Year
  Sex: Female
  Weight: 61.69 kg

DRUGS (4)
  1. TRAMADOL [Suspect]
     Indication: MUSCULOSKELETAL PAIN
     Dosage: 50 MG, 1 TABLET 4X DAY, MOUTH
     Dates: start: 20131108, end: 20131109
  2. VITAMIN B [Concomitant]
  3. CALCIUM [Concomitant]
  4. FISH OIL [Concomitant]

REACTIONS (3)
  - Nausea [None]
  - Dizziness [None]
  - Retching [None]
